FAERS Safety Report 19441355 (Version 1)
Quarter: 2021Q2

REPORT INFORMATION
  Report Type: Spontaneous
  Country: US (occurrence: US)
  Receive Date: 20210617
  Receipt Date: 20210617
  Transmission Date: 20210717
  Serious: Yes (Hospitalization)
  Sender: FDA-Public Use
  Company Number: None

PATIENT
  Age: 86 Year
  Sex: Female

DRUGS (13)
  1. AZEL/TI UTI C [Concomitant]
  2. BU METAN ID E [Concomitant]
  3. IPRATROPIU M [Concomitant]
  4. GABAPENTIN. [Concomitant]
     Active Substance: GABAPENTIN
  5. CARVEDILOL. [Concomitant]
     Active Substance: CARVEDILOL
  6. TAMSU LOSI N [Concomitant]
  7. AMIODARONE [Concomitant]
     Active Substance: AMIODARONE
  8. IOSARTAN [Concomitant]
  9. WARFAN^N [Concomitant]
  10. SUCRALFATE. [Concomitant]
     Active Substance: SUCRALFATE
  11. TADALAFIL. [Suspect]
     Active Substance: TADALAFIL
     Indication: PULMONARY ARTERIAL HYPERTENSION
     Route: 048
     Dates: start: 20190415
  12. DESIPRAMINE [Concomitant]
     Active Substance: DESIPRAMINE
  13. LORAZEPAM. [Concomitant]
     Active Substance: LORAZEPAM

REACTIONS (1)
  - Bronchitis [None]

NARRATIVE: CASE EVENT DATE: 20210524
